FAERS Safety Report 8366754-7 (Version None)
Quarter: 2012Q2

REPORT INFORMATION
  Report Type: 
  Country: None (occurrence: None)
  Receive Date: 20120516
  Receipt Date: 20120516
  Transmission Date: 20120825
  Serious: No
  Sender: FDA-Public Use
  Company Number: None

PATIENT
  Age: 63 Year
  Sex: Male
  Weight: 77 kg

DRUGS (1)
  1. RITUXIMAB [Suspect]
     Indication: GRAFT VERSUS HOST DISEASE
     Dosage: 375 MG/M2 (750 MG) IV INFUSION
     Route: 042
     Dates: start: 20120309

REACTIONS (4)
  - DRUG INTOLERANCE [None]
  - MUSCLE SPASMS [None]
  - HEART RATE DECREASED [None]
  - PAIN IN EXTREMITY [None]
